FAERS Safety Report 26011193 (Version 1)
Quarter: 2025Q4

REPORT INFORMATION
  Report Type: Spontaneous
  Country: US (occurrence: None)
  Receive Date: 20251106
  Receipt Date: 20251106
  Transmission Date: 20260117
  Serious: No
  Sender: FDA-CTU
  Company Number: None

PATIENT
  Sex: Female

DRUGS (1)
  1. STELARA [Suspect]
     Active Substance: USTEKINUMAB
     Indication: Generalised pustular psoriasis
     Dosage: OTHER FREQUENCY : EVERY 3 MONTHS?
     Route: 058
     Dates: start: 20221122

REACTIONS (1)
  - Myocardial infarction [None]
